FAERS Safety Report 11276530 (Version 1)
Quarter: 2015Q3

REPORT INFORMATION
  Report Type: Spontaneous
  Country: JP (occurrence: JP)
  Receive Date: 20150716
  Receipt Date: 20150716
  Transmission Date: 20151125
  Serious: Yes (Other)
  Sender: FDA-Public Use
  Company Number: JP-ELI_LILLY_AND_COMPANY-JP201507005062

PATIENT
  Age: 0 Day

DRUGS (3)
  1. HUMALOG [Suspect]
     Active Substance: INSULIN LISPRO
     Dosage: 14-9-8 IU
     Route: 064
     Dates: end: 20140904
  2. HUMALOG [Suspect]
     Active Substance: INSULIN LISPRO
     Indication: GESTATIONAL DIABETES
     Dosage: 2 IU, TID
     Route: 064
     Dates: start: 20140710
  3. LEVEMIR [Concomitant]
     Active Substance: INSULIN DETEMIR
     Indication: GESTATIONAL DIABETES
     Dosage: 3 IU, QD
     Route: 064
     Dates: start: 20140714, end: 20140904

REACTIONS (5)
  - Intrauterine infection [Unknown]
  - Apgar score low [Unknown]
  - Acidosis [Unknown]
  - Large for dates baby [Unknown]
  - Foetal exposure during pregnancy [Unknown]

NARRATIVE: CASE EVENT DATE: 20140904
